FAERS Safety Report 10069698 (Version 1)
Quarter: 2014Q2

REPORT INFORMATION
  Report Type: Spontaneous
  Country: US (occurrence: None)
  Receive Date: 20140409
  Receipt Date: 20140409
  Transmission Date: 20141212
  Serious: No
  Sender: FDA-Public Use
  Company Number: None

PATIENT
  Age: 30 Year
  Sex: Female
  Weight: 77.11 kg

DRUGS (2)
  1. ZI XIU TANG [Suspect]
     Indication: WEIGHT CONTROL
     Dosage: 250 MG.
     Dates: start: 20131204, end: 20140408
  2. ZI XIU TANG [Suspect]
     Indication: ASTHENIA
     Dosage: 250 MG.
     Dates: start: 20131204, end: 20140408

REACTIONS (2)
  - Product formulation issue [None]
  - Product quality issue [None]
